FAERS Safety Report 8398542 (Version 5)
Quarter: 2016Q2

REPORT INFORMATION
  Report Type: Report from Study
  Country: BR (occurrence: BR)
  Receive Date: 20120209
  Receipt Date: 20160502
  Transmission Date: 20160815
  Serious: Yes (Life-Threatening, Hospitalization, Other)
  Sender: FDA-Public Use
  Company Number: PHHY2012BR010461

PATIENT
  Age: 66 Year
  Sex: Female
  Weight: 60 kg

DRUGS (2)
  1. PROPRANOLOL [Concomitant]
     Active Substance: PROPRANOLOL\PROPRANOLOL HYDROCHLORIDE
     Indication: PRODUCT USED FOR UNKNOWN INDICATION
     Route: 065
  2. SANDOSTATIN LAR DEPOT [Suspect]
     Active Substance: OCTREOTIDE ACETATE
     Indication: ACROMEGALY
     Dosage: 20 MG, QMO, (1 INJECTION EVERY 1 MONTH AND HALF)
     Route: 030
     Dates: start: 2001

REACTIONS (14)
  - Dizziness [Recovered/Resolved]
  - Dysphemia [Not Recovered/Not Resolved]
  - Coma [Recovered/Resolved]
  - Meningitis [Recovered/Resolved with Sequelae]
  - Chronic kidney disease [Recovering/Resolving]
  - Urinary incontinence [Unknown]
  - Inappropriate schedule of drug administration [Unknown]
  - Deafness unilateral [Not Recovered/Not Resolved]
  - Peripheral swelling [Not Recovered/Not Resolved]
  - Cerebral disorder [Not Recovered/Not Resolved]
  - Fatigue [Not Recovered/Not Resolved]
  - Plasma cell myeloma [Recovered/Resolved]
  - Memory impairment [Not Recovered/Not Resolved]
  - Nausea [Recovered/Resolved]

NARRATIVE: CASE EVENT DATE: 2001
